FAERS Safety Report 9625122 (Version 2)
Quarter: 2013Q4

REPORT INFORMATION
  Report Type: Spontaneous
  Country: FR (occurrence: FR)
  Receive Date: 20131016
  Receipt Date: 20131016
  Transmission Date: 20140711
  Serious: Yes (Hospitalization)
  Sender: FDA-Public Use
  Company Number: FR-INCYTE CORPORATION-2013IN002223

PATIENT
  Sex: 0

DRUGS (3)
  1. JAKAVI [Suspect]
     Indication: MYELOFIBROSIS
     Dosage: 10 MG, QD
     Route: 048
     Dates: start: 20130813, end: 20130912
  2. ZELITREX [Concomitant]
     Dosage: UNK
     Dates: start: 20130813
  3. ZYLORIC [Concomitant]
     Dosage: UNK
     Dates: start: 20130912

REACTIONS (2)
  - VIIth nerve paralysis [Unknown]
  - Headache [Recovering/Resolving]
